FAERS Safety Report 8291464-4 (Version None)
Quarter: 2012Q2

REPORT INFORMATION
  Report Type: 
  Country: None (occurrence: None)
  Receive Date: 20120417
  Receipt Date: 20120411
  Transmission Date: 20120825
  Serious: Yes (Other)
  Sender: FDA-Public Use
  Company Number: US-PFIZER INC-2012091277

PATIENT
  Sex: Female
  Weight: 84.807 kg

DRUGS (4)
  1. LYRICA [Suspect]
     Indication: FIBROMYALGIA
     Dosage: 75 MG, 2X/DAY
     Route: 048
     Dates: start: 20120406, end: 20120410
  2. LISINOPRIL [Concomitant]
     Indication: HYPERTENSION
     Dosage: 20 MG, 2X/DAY
  3. METFORMIN [Concomitant]
     Indication: DIABETES MELLITUS
     Dosage: 500 MG, 2X/DAY
  4. LYRICA [Suspect]
     Indication: BACK PAIN

REACTIONS (8)
  - PURPURA [None]
  - RASH ERYTHEMATOUS [None]
  - URTICARIA [None]
  - RASH [None]
  - HAEMORRHAGIC URTICARIA [None]
  - PAIN [None]
  - PRURITUS GENERALISED [None]
  - HYPERSENSITIVITY [None]
